FAERS Safety Report 9846284 (Version 2)
Quarter: 2014Q1

REPORT INFORMATION
  Report Type: Spontaneous
  Country: CA (occurrence: CA)
  Receive Date: 20140127
  Receipt Date: 20140127
  Transmission Date: 20141002
  Serious: Yes (Other)
  Sender: FDA-Public Use
  Company Number: CA-AMGEN-CANSP2014002088

PATIENT
  Age: 66 Year
  Sex: Female

DRUGS (1)
  1. VECTIBIX [Suspect]
     Indication: PRODUCT USED FOR UNKNOWN INDICATION
     Dosage: 100 MG, UNK
     Route: 065
     Dates: start: 20131021, end: 201401

REACTIONS (3)
  - Neoplasm malignant [Unknown]
  - Drug ineffective [Unknown]
  - Condition aggravated [Unknown]
